FAERS Safety Report 5885352-8 (Version None)
Quarter: 2008Q3

REPORT INFORMATION
  Report Type: 
  Country: None (occurrence: None)
  Receive Date: 20080916
  Receipt Date: 20080902
  Transmission Date: 20090109
  Serious: Yes (Other)
  Sender: FDA-Public Use
  Company Number: GB-PURDUE-GBR_2007_0003352

PATIENT
  Sex: Female
  Weight: 3 kg

DRUGS (2)
  1. MORPHINE [Suspect]
     Indication: DRUG USE FOR UNKNOWN INDICATION
     Route: 064
  2. LABETALOL HCL [Concomitant]
     Indication: HYPERTENSION
     Route: 064

REACTIONS (2)
  - NEONATAL RESPIRATORY DEPRESSION [None]
  - SOMNOLENCE NEONATAL [None]
